FAERS Safety Report 9397116 (Version 2)
Quarter: 2013Q3

REPORT INFORMATION
  Report Type: Spontaneous
  Country: US (occurrence: US)
  Receive Date: 20130712
  Receipt Date: 20130820
  Transmission Date: 20140515
  Serious: Yes (Other)
  Sender: FDA-Public Use
  Company Number: US-BAYER-2013-084295

PATIENT
  Age: 33 Year
  Sex: Female
  Weight: 70.3 kg

DRUGS (2)
  1. MIRENA [Suspect]
     Dosage: 20 MCG/24HR, CONT
     Route: 015
     Dates: start: 20050329, end: 20120807
  2. MIRENA [Suspect]
     Dosage: 20 MCG/24HR, CONT
     Route: 015
     Dates: start: 20050705, end: 20120807

REACTIONS (4)
  - Device dislocation [Recovered/Resolved]
  - Device dislocation [Recovered/Resolved]
  - Device misuse [None]
  - Device misuse [None]
